APPROVED DRUG PRODUCT: VERAPAMIL HYDROCHLORIDE
Active Ingredient: VERAPAMIL HYDROCHLORIDE
Strength: 80MG
Dosage Form/Route: TABLET;ORAL
Application: A071366 | Product #001
Applicant: WATSON LABORATORIES INC
Approved: Oct 1, 1986 | RLD: No | RS: No | Type: DISCN